FAERS Safety Report 7664617-3 (Version None)
Quarter: 2011Q3

REPORT INFORMATION
  Report Type: 
  Country: None (occurrence: None)
  Receive Date: 20110806
  Receipt Date: 20110106
  Transmission Date: 20111222
  Serious: No
  Sender: FDA-Public Use
  Company Number: US-ABBOTT-11P-163-0695852-00

PATIENT
  Weight: 75.364 kg

DRUGS (12)
  1. ANTARA (MICRONIZED) [Concomitant]
     Indication: BLOOD TRIGLYCERIDES INCREASED
     Dates: start: 20080101
  2. NIASPAN [Suspect]
     Indication: HIGH DENSITY LIPOPROTEIN ABNORMAL
     Dates: start: 20100901, end: 20101001
  3. NIASPAN [Suspect]
     Dates: start: 20101001, end: 20101101
  4. CRESTOR [Concomitant]
     Indication: BLOOD CHOLESTEROL INCREASED
     Dates: start: 20100320
  5. AMLODIPINE BESYLATE AND BENAZEPRIL HCL [Concomitant]
     Indication: HYPERTENSION
     Dosage: 5/10
     Dates: start: 20100804
  6. FISH OIL [Concomitant]
     Indication: SUPPLEMENTATION THERAPY
  7. REFRESH EYE PM OINTMENT [Concomitant]
     Indication: DRY EYE
     Dates: start: 20090701
  8. UROXATROL [Concomitant]
     Indication: URINARY TRACT DISORDER
     Dates: start: 20080101
  9. CALTRATE VITAMIN D [Concomitant]
     Indication: SUPPLEMENTATION THERAPY
  10. GLUCOSAMINE CHONDROITIN [Concomitant]
     Indication: SUPPLEMENTATION THERAPY
  11. ASPIRIN [Concomitant]
     Indication: PRODUCT USED FOR UNKNOWN INDICATION
  12. PRILOSEC [Concomitant]
     Indication: GASTROOESOPHAGEAL REFLUX DISEASE

REACTIONS (2)
  - RASH PRURITIC [None]
  - RASH [None]
